FAERS Safety Report 24658534 (Version 1)
Quarter: 2024Q4

REPORT INFORMATION
  Report Type: Spontaneous
  Country: US (occurrence: US)
  Receive Date: 20241125
  Receipt Date: 20241125
  Transmission Date: 20250114
  Serious: No
  Sender: MYLAN
  Company Number: US-MYLANLABS-2024M1102865

PATIENT
  Sex: Female

DRUGS (1)
  1. RYZUMVI [Suspect]
     Active Substance: PHENTOLAMINE MESYLATE
     Indication: Pupil constriction procedure
     Dosage: 1 GTT DROPS IN THE RIGHT EYE
     Route: 047
     Dates: start: 20241030

REACTIONS (1)
  - Miosis [Unknown]

NARRATIVE: CASE EVENT DATE: 20241031
